FAERS Safety Report 13765223 (Version 1)
Quarter: 2017Q3

REPORT INFORMATION
  Report Type: Spontaneous
  Country: US (occurrence: US)
  Receive Date: 20170718
  Receipt Date: 20170718
  Transmission Date: 20171127
  Serious: Yes (Hospitalization, Disabling, Other)
  Sender: FDA-Public Use
  Company Number: US-009507513-1108USA00542

PATIENT
  Sex: Female
  Weight: 66.68 kg

DRUGS (1)
  1. FOSAMAX [Suspect]
     Active Substance: ALENDRONATE SODIUM
     Indication: MENOPAUSE
     Dosage: 70 MG, QW
     Route: 048
     Dates: start: 2003

REACTIONS (7)
  - Periodontal disease [Unknown]
  - Gingival bleeding [Unknown]
  - Off label use [Unknown]
  - Femur fracture [Not Recovered/Not Resolved]
  - Dental caries [Unknown]
  - Abscess [Unknown]
  - Skeletal injury [Not Recovered/Not Resolved]

NARRATIVE: CASE EVENT DATE: 2003
